FAERS Safety Report 8536818-3 (Version None)
Quarter: 2012Q3

REPORT INFORMATION
  Report Type: 
  Country: None (occurrence: None)
  Receive Date: 20120725
  Receipt Date: 20120713
  Transmission Date: 20120928
  Serious: Yes (Other)
  Sender: FDA-Public Use
  Company Number: US-ELI_LILLY_AND_COMPANY-US201207004562

PATIENT
  Sex: Female

DRUGS (6)
  1. HUMALOG [Suspect]
     Indication: TYPE 1 DIABETES MELLITUS
     Dosage: UNK, PRN
  2. NOVOLIN 70/30 [Concomitant]
  3. LENTE ILETIN INSULIN [Suspect]
     Indication: TYPE 1 DIABETES MELLITUS
  4. LANTUS [Concomitant]
  5. HUMULIN N [Suspect]
     Indication: TYPE 1 DIABETES MELLITUS
  6. PRENATAL VITAMINS                  /01549301/ [Concomitant]

REACTIONS (3)
  - MATERNAL EXPOSURE DURING PREGNANCY [None]
  - BLINDNESS [None]
  - ABORTION SPONTANEOUS [None]
